FAERS Safety Report 20935120 (Version 2)
Quarter: 2022Q3

REPORT INFORMATION
  Report Type: Spontaneous
  Country: US (occurrence: US)
  Receive Date: 20220608
  Receipt Date: 20220818
  Transmission Date: 20221027
  Serious: Yes (Other)
  Sender: FDA-Public Use
  Company Number: US-JNJFOC-20220607248

PATIENT

DRUGS (7)
  1. DARZALEX [Suspect]
     Active Substance: DARATUMUMAB
     Indication: Plasma cell myeloma
     Route: 065
     Dates: start: 20180720, end: 20210205
  2. VELCADE [Suspect]
     Active Substance: BORTEZOMIB
     Indication: Plasma cell myeloma
     Route: 065
     Dates: start: 20180720, end: 20210205
  3. ATIVAN [Concomitant]
     Active Substance: LORAZEPAM
     Indication: Anxiety
     Route: 065
     Dates: start: 20121231
  4. ZOVIRAX [Concomitant]
     Active Substance: ACYCLOVIR
     Indication: Prophylaxis
     Route: 065
     Dates: start: 20190911
  5. LIPITOR [Concomitant]
     Active Substance: ATORVASTATIN CALCIUM
     Indication: Cardiovascular event prophylaxis
     Route: 065
     Dates: start: 20190208
  6. TOPROL XL [Concomitant]
     Active Substance: METOPROLOL SUCCINATE
     Indication: Hypertension
     Route: 065
     Dates: start: 20190206
  7. NORVASC [Concomitant]
     Active Substance: AMLODIPINE BESYLATE
     Indication: Hypertension
     Route: 065
     Dates: start: 20160301

REACTIONS (1)
  - Plasma cell myeloma [Unknown]
